FAERS Safety Report 16374017 (Version 1)
Quarter: 2019Q2

REPORT INFORMATION
  Report Type: Spontaneous
  Country: IE (occurrence: IE)
  Receive Date: 20190530
  Receipt Date: 20190530
  Transmission Date: 20190711
  Serious: Yes (Death, Hospitalization, Other)
  Sender: FDA-Public Use
  Company Number: IE-MYLANLABS-2019M1050205

PATIENT
  Sex: Female

DRUGS (6)
  1. FOLINIC ACID [Suspect]
     Active Substance: LEUCOVORIN
     Indication: METASTASES TO LIVER
     Dosage: UNK
  2. FLUOROURACIL. [Suspect]
     Active Substance: FLUOROURACIL
     Indication: GALLBLADDER CANCER
     Dosage: UNK UNK, CYCLE (4 CYCLICAL)
     Route: 065
  3. FLUOROURACIL. [Suspect]
     Active Substance: FLUOROURACIL
     Indication: METASTASES TO LIVER
     Dosage: UNK
  4. FOLINIC ACID [Suspect]
     Active Substance: LEUCOVORIN
     Indication: GALLBLADDER CANCER
     Dosage: UNK UNK, CYCLE
     Route: 065
  5. IRINOTECAN [Suspect]
     Active Substance: IRINOTECAN
     Indication: METASTASES TO LIVER
     Dosage: UNK UNK, CYCLE (4 CYCLICAL)
     Route: 065
  6. IRINOTECAN [Suspect]
     Active Substance: IRINOTECAN
     Indication: GALLBLADDER CANCER
     Dosage: UNK

REACTIONS (2)
  - Hyponatraemia [Fatal]
  - Nausea [Fatal]
